FAERS Safety Report 21331068 (Version 1)
Quarter: 2022Q3

REPORT INFORMATION
  Report Type: Spontaneous
  Country: CN (occurrence: CN)
  Receive Date: 20220914
  Receipt Date: 20220914
  Transmission Date: 20221026
  Serious: Yes (Other)
  Sender: FDA-Public Use
  Company Number: None

PATIENT
  Age: 53 Year
  Sex: Female
  Weight: 55 kg

DRUGS (8)
  1. CYCLOPHOSPHAMIDE [Suspect]
     Active Substance: CYCLOPHOSPHAMIDE
     Indication: Breast cancer female
     Dosage: 900MG, D1, Q14D DILUTED IN 0.9% SODIUM CHLORIDE 100ML
     Route: 041
     Dates: start: 20220819, end: 20220819
  2. SODIUM CHLORIDE [Suspect]
     Active Substance: SODIUM CHLORIDE
     Indication: Medication dilution
     Dosage: 100ML, D1, Q14D, DILUTED WITH 900MG CYCLOPHOSPHAMIDE
     Route: 041
     Dates: start: 20220819, end: 20220819
  3. DEXTROSE MONOHYDRATE [Suspect]
     Active Substance: DEXTROSE MONOHYDRATE
     Indication: Medication dilution
     Dosage: 100ML, D1, Q14D, DILUTED WITH 90 MG PIRARUBICIN HYDROCHLORIDE
     Route: 041
     Dates: start: 20220819, end: 20220819
  4. PIRARUBICIN HYDROCHLORIDE [Suspect]
     Active Substance: PIRARUBICIN HYDROCHLORIDE
     Indication: Breast cancer female
     Dosage: 90 MG D1, Q14D DILUTED IN 5% GLUCOSE 100ML
     Route: 041
     Dates: start: 20220819, end: 20220819
  5. GRANULOCYTE COLONY-STIMULATING FACTOR NOS [Concomitant]
     Active Substance: GRANULOCYTE COLONY-STIMULATING FACTOR NOS
     Indication: Prophylaxis
     Dosage: 200 ?G QD
     Route: 065
     Dates: start: 20220820, end: 20220820
  6. GRANULOCYTE COLONY-STIMULATING FACTOR NOS [Concomitant]
     Active Substance: GRANULOCYTE COLONY-STIMULATING FACTOR NOS
     Indication: Full blood count decreased
  7. Sheng xue bao [Concomitant]
     Indication: Prophylaxis
     Dosage: MIXTURE, 15 ML,  TID
     Route: 048
     Dates: start: 20220820, end: 20220820
  8. Sheng xue bao [Concomitant]
     Indication: Full blood count decreased

REACTIONS (3)
  - Myelosuppression [Recovered/Resolved]
  - White blood cell count decreased [Recovered/Resolved]
  - Granulocyte count decreased [Recovered/Resolved]

NARRATIVE: CASE EVENT DATE: 20220830
